FAERS Safety Report 24378496 (Version 1)
Quarter: 2024Q3

REPORT INFORMATION
  Report Type: Report from Study
  Country: JP (occurrence: JP)
  Receive Date: 20240930
  Receipt Date: 20240930
  Transmission Date: 20241016
  Serious: Yes (Other)
  Sender: TAKEDA
  Company Number: JP-TAKEDA-2021TJP066257

PATIENT
  Age: 28 Year
  Sex: Female
  Weight: 57 kg

DRUGS (6)
  1. VONICOG ALFA [Suspect]
     Active Substance: VONICOG ALFA
     Indication: Haemorrhage prophylaxis
     Dosage: 3900 INTERNATIONAL UNIT, SINGLE
     Route: 042
     Dates: start: 20210629, end: 20210629
  2. VONICOG ALFA [Suspect]
     Active Substance: VONICOG ALFA
     Indication: Haemorrhage prophylaxis
     Dosage: 2600 INTERNATIONAL UNIT, SINGLE
     Route: 042
     Dates: start: 20210630, end: 20210630
  3. VONICOG ALFA [Suspect]
     Active Substance: VONICOG ALFA
     Indication: Von Willebrand^s disease
     Dosage: 2600 INTERNATIONAL UNIT
     Route: 042
     Dates: start: 20210701, end: 20210701
  4. VONICOG ALFA [Suspect]
     Active Substance: VONICOG ALFA
     Dosage: UNK
     Route: 065
  5. OXYTOCIN [Concomitant]
     Active Substance: OXYTOCIN
     Indication: Labour induction
     Dosage: 5 INTERNATIONAL UNIT
     Route: 042
     Dates: start: 20210628, end: 20210630
  6. AMPICILLIN [Concomitant]
     Active Substance: AMPICILLIN
     Indication: Infection prophylaxis
     Dosage: 2 GRAM
     Route: 042
     Dates: start: 20210629

REACTIONS (2)
  - Blood creatine phosphokinase increased [Recovering/Resolving]
  - Maternal exposure during pregnancy [Unknown]

NARRATIVE: CASE EVENT DATE: 20210601
